FAERS Safety Report 14248550 (Version 2)
Quarter: 2018Q1

REPORT INFORMATION
  Report Type: Report from Study
  Country: US (occurrence: US)
  Receive Date: 20171204
  Receipt Date: 20180116
  Transmission Date: 20180508
  Serious: Yes (Other)
  Sender: FDA-Public Use
  Company Number: US-BAYER-2017-220144

PATIENT
  Age: 69 Year
  Sex: Female

DRUGS (2)
  1. STIVARGA [Suspect]
     Active Substance: REGORAFENIB
     Indication: COLON CANCER
     Dosage: UNK
  2. STIVARGA [Suspect]
     Active Substance: REGORAFENIB
     Indication: COLON CANCER
     Dosage: DAILY DOSE 160 MG
     Dates: start: 20171108, end: 201712

REACTIONS (6)
  - Dehydration [Recovered/Resolved]
  - Back pain [Not Recovered/Not Resolved]
  - Fatigue [None]
  - Drug intolerance [None]
  - Vomiting [Recovered/Resolved]
  - Abdominal pain upper [None]

NARRATIVE: CASE EVENT DATE: 201711
